FAERS Safety Report 4469789-X (Version None)
Quarter: 2004Q4

REPORT INFORMATION
  Report Type: 
  Country: None (occurrence: None)
  Receive Date: 20041008
  Receipt Date: 20040930
  Transmission Date: 20050328
  Serious: Yes (Hospitalization)
  Sender: FDA-Public Use
  Company Number: GR-ROCHE-381972

PATIENT
  Age: 65 Year
  Sex: Female

DRUGS (6)
  1. XENICAL [Suspect]
     Indication: OBESITY
     Route: 048
     Dates: start: 20040415, end: 20040715
  2. ALBUTEROL [Concomitant]
     Dosage: TRADE NAME AEROLIN
  3. ATROVENT [Concomitant]
  4. PULMICORT [Concomitant]
  5. NEUROBION [Concomitant]
  6. NEURONTIN [Concomitant]

REACTIONS (3)
  - ASTHMA [None]
  - PANCREATITIS [None]
  - PULMONARY OEDEMA [None]
